FAERS Safety Report 7794623-X (Version None)
Quarter: 2011Q4

REPORT INFORMATION
  Report Type: 
  Country: None (occurrence: None)
  Receive Date: 20111004
  Receipt Date: 20110922
  Transmission Date: 20120403
  Serious: Yes (Hospitalization, Other)
  Sender: FDA-Public Use
  Company Number: US-ROCHE-755573

PATIENT
  Sex: Female
  Weight: 49.9 kg

DRUGS (5)
  1. DIFLUCAN [Concomitant]
  2. RETIN-A [Concomitant]
  3. SKELAXIN [Concomitant]
     Indication: HYPERKERATOSIS
  4. ACCUTANE [Suspect]
     Indication: ACNE
     Route: 048
     Dates: start: 20000427, end: 20000823
  5. VALTREX [Concomitant]

REACTIONS (11)
  - INFLAMMATORY BOWEL DISEASE [None]
  - ANAL FISTULA [None]
  - SUICIDAL IDEATION [None]
  - HAEMORRHOIDS [None]
  - CONJUNCTIVITIS [None]
  - COLITIS ULCERATIVE [None]
  - ORAL HERPES [None]
  - GASTROINTESTINAL HAEMORRHAGE [None]
  - PANCREATITIS [None]
  - MULTI-ORGAN FAILURE [None]
  - DEPRESSION [None]
